FAERS Safety Report 4754605-9 (Version None)
Quarter: 2005Q3

REPORT INFORMATION
  Report Type: 
  Country: None (occurrence: None)
  Receive Date: 20050829
  Receipt Date: 20050803
  Transmission Date: 20060218
  Serious: Yes (Life-Threatening, Hospitalization, Other)
  Sender: FDA-Public Use
  Company Number: US-GLAXOSMITHKLINE-A0568801A

PATIENT
  Age: 70 Year
  Sex: Male

DRUGS (2)
  1. REQUIP [Suspect]
     Indication: PARKINSON'S DISEASE
     Route: 065
  2. HERBAL MEDICATION [Concomitant]

REACTIONS (2)
  - BLOOD INSULIN INCREASED [None]
  - HYPOGLYCAEMIA [None]
